FAERS Safety Report 12738196 (Version 4)
Quarter: 2017Q1

REPORT INFORMATION
  Report Type: Spontaneous
  Country: US (occurrence: US)
  Receive Date: 20160913
  Receipt Date: 20170103
  Transmission Date: 20170428
  Serious: Yes (Other)
  Sender: FDA-Public Use
  Company Number: US-ALEXION PHARMACEUTICALS INC.-A201606662

PATIENT
  Sex: Female

DRUGS (1)
  1. STRENSIQ [Suspect]
     Active Substance: ASFOTASE ALFA
     Indication: HYPOPHOSPHATASIA
     Dosage: UNK, TIW
     Route: 058
     Dates: start: 20160220

REACTIONS (13)
  - Abscess [Unknown]
  - Pain [Unknown]
  - Angiofibroma [Unknown]
  - Fall [Unknown]
  - Insomnia [Unknown]
  - Skin injury [Unknown]
  - Contusion [Unknown]
  - Gingival swelling [Unknown]
  - Erythema [Unknown]
  - Lip swelling [Unknown]
  - Tooth loss [Unknown]
  - Restless legs syndrome [Unknown]
  - Loose tooth [Unknown]

NARRATIVE: CASE EVENT DATE: 20160908
